FAERS Safety Report 4325819-7 (Version None)
Quarter: 2004Q1

REPORT INFORMATION
  Report Type: 
  Country: None (occurrence: None)
  Receive Date: 20040324
  Receipt Date: 20040302
  Transmission Date: 20041129
  Serious: Yes (Death, Other)
  Sender: FDA-Public Use
  Company Number: JP_040302798

PATIENT
  Age: 72 Year
  Sex: Male
  Weight: 36 kg

DRUGS (5)
  1. VANCOMYCIN [Suspect]
     Indication: PNEUMONIA STAPHYLOCOCCAL
     Dosage: 500 MG/2 DAY
     Dates: start: 20031120, end: 20031201
  2. PROSTANDIN (ALPROSTADIL) [Concomitant]
  3. SULPERAZON [Concomitant]
  4. MEROPEN (MEROPENEM) [Concomitant]
  5. DIFLUCAN [Concomitant]

REACTIONS (3)
  - ILEUS [None]
  - PNEUMONIA ASPIRATION [None]
  - RESPIRATORY FAILURE [None]
